FAERS Safety Report 8977750 (Version 2)
Quarter: 2013Q1

REPORT INFORMATION
  Report Type: Spontaneous
  Country: JP (occurrence: JP)
  Receive Date: 20121220
  Receipt Date: 20130117
  Transmission Date: 20140127
  Serious: Yes (Hospitalization, Other)
  Sender: FDA-Public Use
  Company Number: JP-ROCHE-1172405

PATIENT
  Age: 74 Year
  Sex: Female

DRUGS (3)
  1. RANIBIZUMAB [Suspect]
     Indication: AGE-RELATED MACULAR DEGENERATION
     Route: 050
     Dates: start: 20121001
  2. RANIBIZUMAB [Suspect]
     Route: 065
     Dates: start: 20121113
  3. GATIFLO [Concomitant]
     Route: 047
     Dates: start: 20121011

REACTIONS (2)
  - Retinal haemorrhage [Unknown]
  - Visual acuity reduced [Unknown]
